FAERS Safety Report 5722910-5 (Version None)
Quarter: 2008Q2

REPORT INFORMATION
  Report Type: 
  Country: None (occurrence: None)
  Receive Date: 20080425
  Receipt Date: 20080410
  Transmission Date: 20081010
  Serious: Yes (Hospitalization)
  Sender: FDA-Public Use
  Company Number: FRPFM-E-20080033

PATIENT
  Sex: Male

DRUGS (10)
  1. NAVELBINE [Suspect]
     Indication: LUNG ADENOCARCINOMA
     Dosage: 60 MG QD IV
     Route: 042
     Dates: start: 20080218
  2. CISPLATIN [Suspect]
     Indication: LUNG ADENOCARCINOMA
     Dates: start: 20080218, end: 20080218
  3. TAHOR [Concomitant]
  4. BIPRETERAX                            . MFR: NOT SPECIFIED [Concomitant]
  5. FUROSEMIDE [Concomitant]
  6. ATARAX [Concomitant]
  7. TRAMADOL HCL [Concomitant]
  8. EMEND [Concomitant]
  9. SOLUPRED [Concomitant]
  10. ZOPHREN [Concomitant]

REACTIONS (2)
  - RENAL FAILURE ACUTE [None]
  - RENAL TUBULAR NECROSIS [None]
